FAERS Safety Report 9986217 (Version 1)
Quarter: 2014Q1

REPORT INFORMATION
  Report Type: Report from Study
  Country: US (occurrence: US)
  Receive Date: 20140307
  Receipt Date: 20140307
  Transmission Date: 20141002
  Serious: No
  Sender: FDA-Public Use
  Company Number: US-ABBVIE-13P-163-1086732-00

PATIENT
  Age: 27 Year
  Sex: Male

DRUGS (4)
  1. HUMIRA [Suspect]
     Indication: PRODUCT USED FOR UNKNOWN INDICATION
     Dosage: 160MG ON DAY 0
     Route: 058
     Dates: start: 201305, end: 201305
  2. HUMIRA [Suspect]
     Dosage: 80 MG ON DAY 14
     Route: 058
  3. HUMIRA [Suspect]
     Route: 058
  4. ASACOL EC [Concomitant]
     Indication: PRODUCT USED FOR UNKNOWN INDICATION

REACTIONS (3)
  - Acne [Unknown]
  - Dry mouth [Unknown]
  - Injection site pain [Unknown]
